FAERS Safety Report 17140248 (Version 5)
Quarter: 2021Q3

REPORT INFORMATION
  Report Type: Spontaneous
  Country: US (occurrence: US)
  Receive Date: 20191211
  Receipt Date: 20210727
  Transmission Date: 20211014
  Serious: Yes (Other)
  Sender: FDA-Public Use
  Company Number: US-GILEAD-2019-0441990

PATIENT
  Sex: Male

DRUGS (3)
  1. TRUVADA [Suspect]
     Active Substance: EMTRICITABINE\TENOFOVIR DISOPROXIL FUMARATE
     Indication: HIV INFECTION
     Dosage: UNK
     Route: 048
     Dates: start: 20100809, end: 20180726
  2. VIREAD [Suspect]
     Active Substance: TENOFOVIR DISOPROXIL FUMARATE
     Indication: HIV INFECTION
     Dosage: UNK
     Route: 048
     Dates: start: 20040526, end: 20100809
  3. DESCOVY [Concomitant]
     Active Substance: EMTRICITABINE\TENOFOVIR ALAFENAMIDE FUMARATE

REACTIONS (10)
  - Osteonecrosis [Not Recovered/Not Resolved]
  - Anhedonia [Unknown]
  - Arthralgia [Unknown]
  - Foot fracture [Recovered/Resolved]
  - Multiple fractures [Unknown]
  - Economic problem [Unknown]
  - Pain [Unknown]
  - Anxiety [Unknown]
  - Bone loss [Unknown]
  - Emotional distress [Unknown]

NARRATIVE: CASE EVENT DATE: 2004
